FAERS Safety Report 6291983-6 (Version None)
Quarter: 2009Q3

REPORT INFORMATION
  Report Type: 
  Country: None (occurrence: None)
  Receive Date: 20090729
  Receipt Date: 20090722
  Transmission Date: 20100115
  Serious: Yes (Disabling)
  Sender: FDA-Public Use
  Company Number: GXBR2009US01571

PATIENT
  Age: 87 Year
  Sex: Female
  Weight: 63.5 kg

DRUGS (8)
  1. ALPRAZOLAM [Suspect]
     Indication: INSOMNIA
     Dosage: 1.0-1.5 MG QD, ORAL
     Route: 048
     Dates: start: 20000101, end: 20090701
  2. TOPROL XCL (METOPROLOL SUCCINATE) [Concomitant]
  3. COZAAR [Concomitant]
  4. GLYBURIDE [Concomitant]
  5. FUROSEMIDE [Concomitant]
  6. ASPIRIN [Concomitant]
  7. MAGNESIUM OXIDE (MAGNESIUM OXIDE) [Concomitant]
  8. COQ10 (UBIDECARENONE) [Concomitant]

REACTIONS (4)
  - DRUG INEFFECTIVE [None]
  - INSOMNIA [None]
  - NERVOUSNESS [None]
  - NEUROPATHY PERIPHERAL [None]
